FAERS Safety Report 19982901 (Version 1)
Quarter: 2021Q4

REPORT INFORMATION
  Report Type: Report from Study
  Country: CA (occurrence: CA)
  Receive Date: 20211022
  Receipt Date: 20211022
  Transmission Date: 20220304
  Serious: Yes (Other)
  Sender: FDA-Public Use
  Company Number: CA-BRISTOL-MYERS SQUIBB COMPANY-BMS-2020-106222

PATIENT
  Age: 60 Year
  Sex: Male
  Weight: 88.7 kg

DRUGS (4)
  1. NIVOLUMAB [Suspect]
     Active Substance: NIVOLUMAB
     Indication: Angiocentric lymphoma
     Dosage: 500 MILLIGRAM, Q4WK
     Route: 042
  2. NIVOLUMAB [Suspect]
     Active Substance: NIVOLUMAB
     Dosage: 400 MILLIGRAM
     Route: 042
  3. NIVOLUMAB [Suspect]
     Active Substance: NIVOLUMAB
     Dosage: 80 MILLIGRAM
     Route: 042
  4. NIVOLUMAB [Suspect]
     Active Substance: NIVOLUMAB
     Dosage: 480 MILLIGRAM
     Route: 042

REACTIONS (7)
  - Chest injury [Unknown]
  - Heart rate increased [Recovered/Resolved]
  - Weight increased [Not Recovered/Not Resolved]
  - Fall [Recovering/Resolving]
  - Chest pain [Unknown]
  - Limb injury [Unknown]
  - Intentional product use issue [Unknown]

NARRATIVE: CASE EVENT DATE: 20201210
